FAERS Safety Report 9503589 (Version 1)
Quarter: 2013Q3

REPORT INFORMATION
  Report Type: Spontaneous
  Country: NL (occurrence: NL)
  Receive Date: 20130906
  Receipt Date: 20130906
  Transmission Date: 20140515
  Serious: Yes (Congenital Anomaly)
  Sender: FDA-Public Use
  Company Number: NL-LUNDBECK-DKLU1093388

PATIENT
  Sex: 0

DRUGS (1)
  1. ONFI [Suspect]
     Indication: MATERNAL EXPOSURE TIMING UNSPECIFIED
     Route: 064

REACTIONS (1)
  - Congenital central nervous system anomaly [Unknown]
